FAERS Safety Report 9689907 (Version 2)
Quarter: 2013Q4

REPORT INFORMATION
  Report Type: Spontaneous
  Country: US (occurrence: US)
  Receive Date: 20131115
  Receipt Date: 20131121
  Transmission Date: 20140711
  Serious: Yes (Hospitalization, Other)
  Sender: FDA-Public Use
  Company Number: US-PFIZER INC-2013325764

PATIENT
  Sex: Male

DRUGS (1)
  1. CORDARONE [Suspect]
     Dosage: UNK

REACTIONS (8)
  - Heart rate decreased [Unknown]
  - Hallucination [Unknown]
  - Tremor [Unknown]
  - Dyskinesia [Unknown]
  - Paraesthesia [Unknown]
  - Sleep disorder [Unknown]
  - Abnormal dreams [Unknown]
  - Agitation [Unknown]
